FAERS Safety Report 20479811 (Version 1)
Quarter: 2022Q1

REPORT INFORMATION
  Report Type: Report from Study
  Country: CA (occurrence: CA)
  Receive Date: 20220216
  Receipt Date: 20220216
  Transmission Date: 20220423
  Serious: Yes (Hospitalization)
  Sender: FDA-Public Use
  Company Number: CA-HLS-202200267

PATIENT
  Sex: Female

DRUGS (2)
  1. CLOZARIL [Suspect]
     Active Substance: CLOZAPINE
     Indication: Product used for unknown indication
     Route: 048
     Dates: start: 20201130, end: 20210908
  2. WELLBUTRIN XL [Concomitant]
     Active Substance: BUPROPION HYDROCHLORIDE
     Indication: Product used for unknown indication
     Dosage: 150- 300 MG
     Route: 065

REACTIONS (14)
  - Akathisia [Unknown]
  - Apathy [Unknown]
  - Blunted affect [Unknown]
  - Aggression [Unknown]
  - Delusion [Unknown]
  - Dystonia [Unknown]
  - Emotional poverty [Unknown]
  - Hallucination [Unknown]
  - Impulse-control disorder [Unknown]
  - Parkinsonism [Unknown]
  - Psychotic disorder [Unknown]
  - Social problem [Unknown]
  - Tardive dyskinesia [Unknown]
  - Thinking abnormal [Unknown]
